FAERS Safety Report 7775335-5 (Version None)
Quarter: 2011Q3

REPORT INFORMATION
  Report Type: 
  Country: None (occurrence: None)
  Receive Date: 20110921
  Receipt Date: 20110908
  Transmission Date: 20111222
  Serious: Yes (Disabling, Other)
  Sender: FDA-Public Use
  Company Number: FK201101884

PATIENT
  Age: 53 Year
  Sex: Female

DRUGS (4)
  1. AMBIT SORENSON PAIN PUMP [Suspect]
     Indication: POSTOPERATIVE ANALGESIA
     Dosage: INTRA-ARTICULAR
     Route: 014
  2. NONSTEROIDAL ANTI-INFLAMMATORY MEDICATIONS (DICLOFENAC SODIUM) [Concomitant]
  3. CORTICOSTEROID INJECTION (CORTICOSTEROIDS) [Concomitant]
  4. SENSORCAINE [Suspect]
     Indication: POSTOPERATIVE ANALGESIA
     Dosage: 2 ML/HR FOR FORTYEIGHT TO SIXTY HOURS, INTRA-ARTICULAR
     Route: 014

REACTIONS (4)
  - MUSCULOSKELETAL PAIN [None]
  - ROTATOR CUFF SYNDROME [None]
  - CHONDROLYSIS [None]
  - MOBILITY DECREASED [None]
